FAERS Safety Report 9934930 (Version 2)
Quarter: 2014Q1

REPORT INFORMATION
  Report Type: Report from Study
  Country: JP (occurrence: JP)
  Receive Date: 20140228
  Receipt Date: 20140228
  Transmission Date: 20141002
  Serious: Yes (Hospitalization)
  Sender: FDA-Public Use
  Company Number: JP-TAKEDA-TCI2012A02408

PATIENT
  Age: 75 Year
  Sex: Male
  Weight: 65.4 kg

DRUGS (12)
  1. ALOGLIPTIN [Suspect]
     Indication: TYPE 2 DIABETES MELLITUS
     Dosage: 12.5 MG, QD
     Route: 048
     Dates: start: 20110324, end: 20110704
  2. ALOGLIPTIN [Suspect]
     Dosage: 25 MG, QD
     Route: 048
     Dates: start: 20110705
  3. TAKEPRON OD TABLETS 15 [Concomitant]
     Indication: PROPHYLAXIS
     Dosage: 15 MG, QD
     Route: 048
     Dates: start: 2011, end: 20140124
  4. KOLANTYL                           /00130401/ [Concomitant]
     Dosage: 3 G, 1 DAYS
     Route: 048
     Dates: end: 20110421
  5. ANAFRANIL [Concomitant]
     Dosage: 30 MG, 1 DAYS
     Route: 048
     Dates: end: 20110421
  6. CONIEL [Concomitant]
     Dosage: 4 MG, 1 DAYS
     Route: 048
     Dates: end: 20140124
  7. CRESTOR [Concomitant]
     Dosage: 2.5 MG, 1 DAYS
     Route: 048
     Dates: end: 20120201
  8. CRESTOR [Concomitant]
     Dosage: 5 MG, 1 DAYS
     Route: 048
     Dates: start: 20120202, end: 20140124
  9. PLETAAL [Concomitant]
     Indication: PROPHYLAXIS
     Dosage: 100 MG, 1 DAYS
     Route: 048
     Dates: start: 201104, end: 20140124
  10. THEODUR [Concomitant]
     Indication: PRODUCT USED FOR UNKNOWN INDICATION
     Dosage: 200 MG, 1 DAYS
     Route: 048
     Dates: start: 2011, end: 20140124
  11. MYSLEE [Concomitant]
     Indication: INSOMNIA
     Dosage: 10 MG, 1 DAYS
     Route: 048
     Dates: start: 2011, end: 20140124
  12. CLEANAL [Concomitant]
     Dosage: 1200 MG, 1 DAYS
     Route: 048
     Dates: start: 2011, end: 20140124

REACTIONS (2)
  - Aortic dissection [Recovered/Resolved]
  - Aortic aneurysm [Recovered/Resolved]
